FAERS Safety Report 6387164-8 (Version None)
Quarter: 2009Q4

REPORT INFORMATION
  Report Type: 
  Country: None (occurrence: None)
  Receive Date: 20091002
  Receipt Date: 20090925
  Transmission Date: 20100525
  Serious: Yes (Hospitalization)
  Sender: FDA-Public Use
  Company Number: PHHO2009DE11823

PATIENT
  Sex: Female
  Weight: 101.6 kg

DRUGS (9)
  1. ALISKIREN ALI+TAB+CVR [Suspect]
     Indication: CARDIOVASCULAR DISORDER
     Dosage: UNK
     Route: 048
     Dates: start: 20080403
  2. DIGOXIN [Concomitant]
  3. DIOVAN [Concomitant]
  4. TORSEMIDE [Concomitant]
  5. FALITHROM [Concomitant]
  6. CLEXANE [Concomitant]
  7. INSULIN [Concomitant]
  8. OXYGEN THERAPY [Concomitant]
  9. CARVEDILOL [Concomitant]

REACTIONS (1)
  - SLEEP APNOEA SYNDROME [None]
